FAERS Safety Report 12062592 (Version 1)
Quarter: 2016Q1

REPORT INFORMATION
  Report Type: Report from Study
  Country: IL (occurrence: IL)
  Receive Date: 20160210
  Receipt Date: 20160210
  Transmission Date: 20160526
  Serious: Yes (Death, Other)
  Sender: FDA-Public Use
  Company Number: IL-MYLANLABS-2016M1004942

PATIENT

DRUGS (5)
  1. VINCRISTINE [Suspect]
     Active Substance: VINCRISTINE
     Indication: EWING^S SARCOMA
     Dosage: 2 MG/M2, 2MG MAX
     Route: 040
  2. DEXRAZOXANE. [Concomitant]
     Active Substance: DEXRAZOXANE
     Dosage: 250 MG/M2/DAY FOR 3 DAYS GIVEN WITH DOXORUBICIN
     Route: 042
  3. MESNA. [Concomitant]
     Active Substance: MESNA
     Dosage: 2100 MG/M2/DAY CONTINUOUS INFUSION FOR 2 DAYS GIVEN WITH CYCLOPHOSPHAMIDE
  4. DOXORUBICIN [Suspect]
     Active Substance: DOXORUBICIN
     Indication: EWING^S SARCOMA
     Dosage: 25 MG/M2/DAY FOR 3 DAYS ADMINISTERED OVER 15 MIN
     Route: 041
  5. CYCLOPHOSPHAMIDE. [Suspect]
     Active Substance: CYCLOPHOSPHAMIDE
     Indication: EWING^S SARCOMA
     Dosage: 2100 MG/M2/DAY FOR 2 DAYS ADMINISTERED OVER 1 HR
     Route: 041

REACTIONS (2)
  - Sepsis [Fatal]
  - Aplastic anaemia [Unknown]
